FAERS Safety Report 19766796 (Version 4)
Quarter: 2022Q1

REPORT INFORMATION
  Report Type: Report from Study
  Country: US (occurrence: US)
  Receive Date: 20210831
  Receipt Date: 20220120
  Transmission Date: 20220423
  Serious: Yes (Hospitalization, Other)
  Sender: FDA-Public Use
  Company Number: US-JAZZ-2021-US-015110

PATIENT
  Sex: Female

DRUGS (11)
  1. XYREM [Suspect]
     Active Substance: SODIUM OXYBATE
     Indication: Narcolepsy
     Dosage: 2.25 GRAM, BID
     Route: 048
     Dates: start: 200408, end: 200410
  2. XYREM [Suspect]
     Active Substance: SODIUM OXYBATE
     Indication: Cataplexy
     Dosage: DOSE ADJUSTMNENT
     Route: 048
     Dates: start: 200410, end: 202012
  3. XYREM [Suspect]
     Active Substance: SODIUM OXYBATE
     Dosage: 4 GRAM, BID
     Route: 048
     Dates: start: 202012
  4. PRIMIDONE [Concomitant]
     Active Substance: PRIMIDONE
  5. EFFEXOR [Concomitant]
     Active Substance: VENLAFAXINE HYDROCHLORIDE
  6. MODAFINIL [Concomitant]
     Active Substance: MODAFINIL
  7. ALPRAZOLAM [Concomitant]
     Active Substance: ALPRAZOLAM
  8. AMOXICILLIN [Concomitant]
     Active Substance: AMOXICILLIN
  9. DICLOFENAC SODIUM [Concomitant]
     Active Substance: DICLOFENAC SODIUM
  10. IBUPROFEN [Concomitant]
     Active Substance: IBUPROFEN
  11. ADDERALL [Concomitant]
     Active Substance: AMPHETAMINE ASPARTATE\AMPHETAMINE SULFATE\DEXTROAMPHETAMINE SACCHARATE\DEXTROAMPHETAMINE SULFATE

REACTIONS (4)
  - Neuropathy peripheral [Unknown]
  - Patella fracture [Unknown]
  - Gait disturbance [Unknown]
  - Joint instability [Unknown]
